FAERS Safety Report 12451110 (Version 1)
Quarter: 2016Q2

REPORT INFORMATION
  Report Type: Spontaneous
  Country: US (occurrence: None)
  Receive Date: 20160608
  Receipt Date: 20160608
  Transmission Date: 20160815
  Serious: Yes (Other)
  Sender: FDA-Public Use
  Company Number: None

PATIENT
  Age: 77 Year
  Sex: Female
  Weight: 64.86 kg

DRUGS (11)
  1. BIOTIN [Concomitant]
     Active Substance: BIOTIN
  2. MULTI-VITAMIN [Concomitant]
     Active Substance: .ALPHA.-TOCOPHEROL ACETATE, DL-\ASCORBIC ACID\CYANOCOBALAMIN\FLUORIDE ION\FOLIC ACID\NIACIN\PYRIDOXINE\RIBOFLAVIN\THIAMINE\VITAMIN A\VITAMIN D
  3. ZETIA [Concomitant]
     Active Substance: EZETIMIBE
  4. GABAPENTIN. [Concomitant]
     Active Substance: GABAPENTIN
  5. ASA [Concomitant]
     Active Substance: ASPIRIN
  6. ALPHA LIPOIC ACID [Concomitant]
     Active Substance: .ALPHA.-LIPOIC ACID
  7. LISINOPRIL. [Concomitant]
     Active Substance: LISINOPRIL
  8. JANUVIA [Suspect]
     Active Substance: SITAGLIPTIN PHOSPHATE
     Indication: TYPE 2 DIABETES MELLITUS
     Dosage: 56 TABLETS
     Route: 048
  9. OXYCONTIN [Concomitant]
     Active Substance: OXYCODONE HYDROCHLORIDE
  10. CALCIUM WITH D [Concomitant]
     Active Substance: CALCIUM\VITAMIN D
  11. GLIPIZIDE. [Concomitant]
     Active Substance: GLIPIZIDE

REACTIONS (1)
  - Retinopathy [None]

NARRATIVE: CASE EVENT DATE: 20160520
